FAERS Safety Report 25291316 (Version 1)
Quarter: 2025Q2

REPORT INFORMATION
  Report Type: Spontaneous
  Country: US (occurrence: US)
  Receive Date: 20250510
  Receipt Date: 20250510
  Transmission Date: 20250717
  Serious: No
  Sender: SANOFI AVENTIS
  Company Number: US-SA-2025SA120406

PATIENT
  Age: 43 Year
  Sex: Male

DRUGS (24)
  1. REZUROCK [Suspect]
     Active Substance: BELUMOSUDIL
     Indication: Chronic graft versus host disease
     Dosage: 200MG, BID
     Route: 048
  2. ACYCLOVIR [Concomitant]
     Active Substance: ACYCLOVIR
  3. ALLOPURINOL [Concomitant]
     Active Substance: ALLOPURINOL
  4. PERIDEX [Concomitant]
     Active Substance: CHLORHEXIDINE GLUCONATE
  5. CLOBETASOL PROPIONATE [Concomitant]
     Active Substance: CLOBETASOL PROPIONATE
  6. DESONIDE [Concomitant]
     Active Substance: DESONIDE
  7. JAKAFI [Concomitant]
     Active Substance: RUXOLITINIB
  8. PROTONIX [Concomitant]
     Active Substance: PANTOPRAZOLE SODIUM
  9. MAGNESIUM [Concomitant]
     Active Substance: MAGNESIUM
  10. FLUOCINONIDE [Concomitant]
     Active Substance: FLUOCINONIDE
  11. KLONOPIN [Concomitant]
     Active Substance: CLONAZEPAM
  12. LACOSAMIDE [Concomitant]
     Active Substance: LACOSAMIDE
  13. METOPROLOL [Concomitant]
     Active Substance: METOPROLOL
  14. NARCAN [Concomitant]
     Active Substance: NALOXONE HYDROCHLORIDE
  15. DICYCLOMINE [Concomitant]
     Active Substance: DICYCLOMINE HYDROCHLORIDE
  16. BUDESONIDE [Concomitant]
     Active Substance: BUDESONIDE
  17. BACTRIM [Concomitant]
     Active Substance: SULFAMETHOXAZOLE\TRIMETHOPRIM
  18. VITAMIN D2 [Concomitant]
     Active Substance: ERGOCALCIFEROL
  19. TYLENOL [Concomitant]
     Active Substance: ACETAMINOPHEN
  20. TOBRADEX [Concomitant]
     Active Substance: DEXAMETHASONE\TOBRAMYCIN
  21. TACROLIMUS [Concomitant]
     Active Substance: TACROLIMUS
  22. SIROLIMUS [Concomitant]
     Active Substance: SIROLIMUS
  23. RESTASIS [Concomitant]
     Active Substance: CYCLOSPORINE
  24. PROCHLORPERAZINE [Concomitant]
     Active Substance: PROCHLORPERAZINE

REACTIONS (3)
  - Dry eye [Not Recovered/Not Resolved]
  - Skin discolouration [Not Recovered/Not Resolved]
  - Weight decreased [Not Recovered/Not Resolved]
